FAERS Safety Report 14818759 (Version 1)
Quarter: 2018Q2

REPORT INFORMATION
  Report Type: Spontaneous
  Country: US (occurrence: US)
  Receive Date: 20180427
  Receipt Date: 20180427
  Transmission Date: 20180711
  Serious: Yes (Hospitalization, Other)
  Sender: FDA-Public Use
  Company Number: US-ZYDUS-019846

PATIENT
  Age: 37 Year
  Sex: Male

DRUGS (6)
  1. DIPHENHYDRAMINE. [Suspect]
     Active Substance: DIPHENHYDRAMINE
     Indication: DELIRIUM
     Route: 030
  2. BENZATROPINE/BENZATROPINE MESILATE [Suspect]
     Active Substance: BENZTROPINE
     Indication: PRODUCT USED FOR UNKNOWN INDICATION
     Route: 065
  3. HALOPERIDOL. [Suspect]
     Active Substance: HALOPERIDOL
     Indication: DELIRIUM
     Route: 030
  4. PALIPERIDONE/PALIPERIDONE PALMITATE [Concomitant]
     Indication: PRODUCT USED FOR UNKNOWN INDICATION
     Route: 065
  5. LITHIUM. [Concomitant]
     Active Substance: LITHIUM
     Indication: PRODUCT USED FOR UNKNOWN INDICATION
     Route: 065
  6. BUSPIRONE [Concomitant]
     Active Substance: BUSPIRONE HYDROCHLORIDE
     Indication: PRODUCT USED FOR UNKNOWN INDICATION
     Route: 065

REACTIONS (8)
  - Tachycardia [Recovered/Resolved]
  - Mydriasis [Recovered/Resolved]
  - Hypertension [Recovered/Resolved]
  - Delirium [Recovered/Resolved]
  - Anticholinergic syndrome [Recovered/Resolved]
  - Mucous membrane disorder [Recovered/Resolved]
  - Flushing [Recovered/Resolved]
  - Agitation [Recovered/Resolved]
